FAERS Safety Report 16410647 (Version 1)
Quarter: 2019Q3

REPORT INFORMATION
  Report Type: Spontaneous
  Country: US (occurrence: US)
  Receive Date: 20190607
  Receipt Date: 20190607
  Transmission Date: 20191004
  Serious: Yes (Disabling)
  Sender: FDA-Public Use
  Company Number: None

PATIENT
  Age: 32 Year
  Sex: Female
  Weight: 56.25 kg

DRUGS (3)
  1. CIPRO [Suspect]
     Active Substance: CIPROFLOXACIN HYDROCHLORIDE
     Indication: AMOEBIASIS
     Dates: start: 20120811, end: 20120817
  2. MALARONE [Concomitant]
     Active Substance: ATOVAQUONE\PROGUANIL HYDROCHLORIDE
  3. FLUCONAZOLE. [Concomitant]
     Active Substance: FLUCONAZOLE

REACTIONS (15)
  - Diarrhoea [None]
  - Tendon pain [None]
  - Panic attack [None]
  - Nightmare [None]
  - Constipation [None]
  - Serum ferritin decreased [None]
  - Astigmatism [None]
  - Depression [None]
  - Memory impairment [None]
  - Tendon disorder [None]
  - Suicidal ideation [None]
  - Arthralgia [None]
  - Joint stiffness [None]
  - Condition aggravated [None]
  - Malabsorption [None]

NARRATIVE: CASE EVENT DATE: 20120812
